FAERS Safety Report 9462060 (Version 2)
Quarter: 2013Q3

REPORT INFORMATION
  Report Type: Spontaneous
  Country: BR (occurrence: BR)
  Receive Date: 20130816
  Receipt Date: 20130822
  Transmission Date: 20140515
  Serious: Yes (Hospitalization, Other)
  Sender: FDA-Public Use
  Company Number: BR-PFIZER INC-2013227365

PATIENT
  Age: 63 Year
  Sex: Female
  Weight: 100 kg

DRUGS (9)
  1. LONITEN [Suspect]
     Indication: BLOOD PRESSURE INCREASED
     Dosage: 10 MG, 2X/DAY
     Route: 048
     Dates: start: 201307, end: 20130804
  2. METHYLDOPA [Concomitant]
     Indication: HYPERTENSION
     Dosage: UNK
  3. LOSARTAN [Concomitant]
     Indication: HYPERTENSION
     Dosage: UNK
  4. MODURETIC [Concomitant]
     Dosage: UNK
  5. SUSTRATE [Concomitant]
     Dosage: UNK
  6. LASILIX [Concomitant]
     Dosage: UNK
  7. SELOZOK [Concomitant]
     Dosage: UNK
  8. SPIRONOLACTONE [Concomitant]
     Dosage: UNK
  9. APRESOLINA [Concomitant]
     Dosage: UNK

REACTIONS (15)
  - Generalised oedema [Unknown]
  - Fluid retention [Not Recovered/Not Resolved]
  - Weight increased [Recovered/Resolved]
  - Insomnia [Unknown]
  - Gait disturbance [Unknown]
  - Suffocation feeling [Unknown]
  - Dry mouth [Not Recovered/Not Resolved]
  - Dry throat [Unknown]
  - Micturition disorder [Recovering/Resolving]
  - Pruritus [Recovered/Resolved]
  - Musculoskeletal pain [Unknown]
  - Eye disorder [Unknown]
  - Erythema [Not Recovered/Not Resolved]
  - Renal failure [Unknown]
  - Blood pressure inadequately controlled [Unknown]
